FAERS Safety Report 12552685 (Version 1)
Quarter: 2016Q3

REPORT INFORMATION
  Report Type: Spontaneous
  Country: US (occurrence: None)
  Receive Date: 20160712
  Receipt Date: 20160712
  Transmission Date: 20161109
  Serious: Yes (Life-Threatening, Hospitalization)
  Sender: FDA-Public Use
  Company Number: None

PATIENT
  Age: 61 Year
  Sex: Male
  Weight: 83.6 kg

DRUGS (1)
  1. WARFARIN [Suspect]
     Active Substance: WARFARIN
     Route: 048
     Dates: start: 20091229

REACTIONS (1)
  - Gastrointestinal haemorrhage [None]

NARRATIVE: CASE EVENT DATE: 20160405
